FAERS Safety Report 11250642 (Version 1)
Quarter: 2015Q3

REPORT INFORMATION
  Report Type: Spontaneous
  Country: US (occurrence: US)
  Receive Date: 20150708
  Receipt Date: 20150708
  Transmission Date: 20151125
  Serious: Yes (Other)
  Sender: FDA-Public Use
  Company Number: US-ELI_LILLY_AND_COMPANY-US201102007260

PATIENT
  Sex: Male

DRUGS (1)
  1. ALIMTA [Suspect]
     Active Substance: PEMETREXED DISODIUM
     Indication: HEAD AND NECK CANCER
     Dosage: 950 MG, UNK
     Dates: start: 20101115, end: 20101228

REACTIONS (2)
  - Disease progression [Unknown]
  - Off label use [Recovered/Resolved]
